FAERS Safety Report 4339631-6 (Version None)
Quarter: 2004Q2

REPORT INFORMATION
  Report Type: 
  Country: None (occurrence: None)
  Receive Date: 20040415
  Receipt Date: 20030411
  Transmission Date: 20050107
  Serious: Yes (Disabling)
  Sender: FDA-Public Use
  Company Number: US-MERCK-0304USA01351

PATIENT
  Age: 49 Year
  Sex: Female
  Weight: 65 kg

DRUGS (6)
  1. NORVASC [Concomitant]
     Indication: HYPERTENSION
     Route: 065
  2. ZYRTEC [Concomitant]
     Route: 065
  3. PLAVIX [Concomitant]
     Indication: CORONARY ARTERY DISEASE
     Route: 065
  4. VIOXX [Suspect]
     Indication: PAIN IN EXTREMITY
     Route: 048
     Dates: start: 20000101, end: 20010101
  5. VIOXX [Suspect]
     Indication: OEDEMA PERIPHERAL
     Route: 048
     Dates: start: 20000101, end: 20010101
  6. ZOCOR [Concomitant]
     Route: 048

REACTIONS (12)
  - ACCIDENT [None]
  - ASTHMA [None]
  - BLOOD PRESSURE INCREASED [None]
  - COLD SWEAT [None]
  - CONTUSION [None]
  - CORONARY ARTERY DISEASE [None]
  - DYSPEPSIA [None]
  - HYPERTENSION [None]
  - LOSS OF CONSCIOUSNESS [None]
  - OESOPHAGEAL DISORDER [None]
  - PAIN [None]
  - PEPTIC ULCER [None]
